FAERS Safety Report 9471818 (Version 1)
Quarter: 2013Q3

REPORT INFORMATION
  Report Type: Spontaneous
  Country: US (occurrence: None)
  Receive Date: 20130819
  Receipt Date: 20130819
  Transmission Date: 20140515
  Serious: Yes (Hospitalization)
  Sender: FDA-Public Use
  Company Number: US-012631

PATIENT
  Age: 53 Year
  Sex: Male
  Weight: 90.72 kg

DRUGS (3)
  1. DEGARELIX [Suspect]
     Indication: PROSTATE CANCER
     Dosage: ( 240 MG TOTAL SUBCUTANEOUS)
     Route: 058
     Dates: start: 20130719, end: 20130719
  2. CIALIS [Concomitant]
  3. VESICARE [Concomitant]

REACTIONS (6)
  - Abdominal wall abscess [None]
  - Injection site abscess [None]
  - Blood pressure increased [None]
  - Product contamination [None]
  - Haemophilus test positive [None]
  - Bacterial infection [None]
